FAERS Safety Report 8247957 (Version 3)
Quarter: 2013Q2

REPORT INFORMATION
  Report Type: Spontaneous
  Country: US (occurrence: US)
  Receive Date: 20111116
  Receipt Date: 20130401
  Transmission Date: 20140414
  Serious: Yes (Hospitalization, Other)
  Sender: FDA-Public Use
  Company Number: US-ELI_LILLY_AND_COMPANY-US201111003326

PATIENT
  Age: 90 Year
  Sex: Female

DRUGS (4)
  1. FORTEO [Suspect]
     Indication: OSTEOPOROSIS
     Dosage: 20 UG, QD
     Dates: start: 201109, end: 201209
  2. FORTEO [Suspect]
     Dosage: 20 UG, QD
     Dates: start: 201109, end: 201209
  3. FORTEO [Suspect]
     Dosage: 20 UG, QD
  4. INSULIN [Concomitant]

REACTIONS (8)
  - Myocardial infarction [Unknown]
  - Cardiac failure congestive [Unknown]
  - Arteriosclerosis [Unknown]
  - Cardiac disorder [Unknown]
  - Drug interaction [Unknown]
  - Nervousness [Unknown]
  - Insomnia [Unknown]
  - Muscle spasms [Unknown]
